FAERS Safety Report 4660272-5 (Version None)
Quarter: 2005Q2

REPORT INFORMATION
  Report Type: 
  Country: None (occurrence: None)
  Receive Date: 20050427
  Receipt Date: 20050117
  Transmission Date: 20051028
  Serious: No
  Sender: FDA-Public Use
  Company Number: 211985

PATIENT
  Sex: Female
  Weight: 59 kg

DRUGS (1)
  1. XOLAIR [Suspect]
     Indication: ASTHMA
     Dosage: 375 MG, QW

REACTIONS (2)
  - DRUG INEFFECTIVE [None]
  - OROPHARYNGEAL SWELLING [None]
